FAERS Safety Report 7962358-6 (Version None)
Quarter: 2011Q4

REPORT INFORMATION
  Report Type: 
  Country: None (occurrence: None)
  Receive Date: 20111207
  Receipt Date: 20111130
  Transmission Date: 20120403
  Serious: Yes (Other)
  Sender: FDA-Public Use
  Company Number: FR-MERCK-1109USA00638

PATIENT
  Age: 65 Year
  Sex: Female

DRUGS (10)
  1. EMEND [Suspect]
     Route: 048
     Dates: start: 20110609, end: 20110609
  2. CYCLOPHOSPHAMIDE [Suspect]
     Route: 042
     Dates: start: 20110428, end: 20110428
  3. PRIMPERAN TAB [Concomitant]
     Dosage: 20MG IN 3 WEEKS
     Route: 042
     Dates: start: 20110428, end: 20110609
  4. ZOFRAN [Concomitant]
     Route: 065
  5. EMEND [Suspect]
     Route: 048
     Dates: start: 20110610, end: 20110611
  6. DOCETAXEL [Suspect]
     Route: 042
     Dates: start: 20110428, end: 20110428
  7. DOCETAXEL [Suspect]
     Route: 042
     Dates: start: 20110519, end: 20110519
  8. DOCETAXEL [Suspect]
     Indication: CHEMOTHERAPY
     Route: 042
     Dates: start: 20110609, end: 20110609
  9. CYCLOPHOSPHAMIDE [Suspect]
     Indication: CHEMOTHERAPY
     Route: 042
     Dates: start: 20110609, end: 20110609
  10. CYCLOPHOSPHAMIDE [Suspect]
     Route: 042
     Dates: start: 20110519, end: 20110519

REACTIONS (8)
  - DRUG INTERACTION [None]
  - RASH [None]
  - MUCOSAL INFLAMMATION [None]
  - MUSCULAR WEAKNESS [None]
  - ASTHENIA [None]
  - DECREASED APPETITE [None]
  - NEUTROPENIA [None]
  - PARAESTHESIA [None]
